FAERS Safety Report 6041634-0 (Version None)
Quarter: 2009Q1

REPORT INFORMATION
  Report Type: 
  Country: None (occurrence: None)
  Receive Date: 20090116
  Receipt Date: 20081028
  Transmission Date: 20090719
  Serious: No
  Sender: FDA-Public Use
  Company Number: US-BRISTOL-MYERS SQUIBB COMPANY-14386742

PATIENT
  Sex: Male

DRUGS (2)
  1. ABILIFY [Suspect]
     Indication: BIPOLAR DISORDER
     Dosage: INITIALLY STARTED ON 10-15MG AND LATTER INCREASED TO 25MG
  2. ABILIFY [Suspect]
     Indication: ATTENTION DEFICIT/HYPERACTIVITY DISORDER
     Dosage: INITIALLY STARTED ON 10-15MG AND LATTER INCREASED TO 25MG

REACTIONS (1)
  - MANIA [None]
